FAERS Safety Report 5075093-1 (Version None)
Quarter: 2006Q3

REPORT INFORMATION
  Report Type: 
  Country: None (occurrence: None)
  Receive Date: 20060714
  Receipt Date: 20060510
  Transmission Date: 20061208
  Serious: No
  Sender: FDA-Public Use
  Company Number: 2006SP002006

PATIENT
  Age: 53 Year
  Sex: Female
  Weight: 107.5025 kg

DRUGS (10)
  1. LUNESTA [Suspect]
     Dosage: SEE IMAGE
     Route: 048
     Dates: start: 20060428, end: 20060501
  2. LUNESTA [Suspect]
     Dosage: SEE IMAGE
     Route: 048
     Dates: start: 20060501, end: 20060501
  3. LUNESTA [Suspect]
     Dosage: SEE IMAGE
     Route: 048
     Dates: start: 20060501, end: 20060501
  4. LUNESTA [Suspect]
     Dosage: SEE IMAGE
     Route: 048
     Dates: start: 20060501, end: 20060501
  5. LUNESTA [Suspect]
     Dosage: SEE IMAGE
     Route: 048
     Dates: start: 20060501
  6. AMBIEN [Concomitant]
  7. EFFEXOR [Concomitant]
  8. GEODON [Concomitant]
  9. TOPAMAX [Concomitant]
  10. ANTIHYPERTENSIVES [Concomitant]

REACTIONS (1)
  - INITIAL INSOMNIA [None]
